FAERS Safety Report 9803454 (Version 2)
Quarter: 2014Q1

REPORT INFORMATION
  Report Type: Spontaneous
  Country: US (occurrence: US)
  Receive Date: 20140108
  Receipt Date: 20140109
  Transmission Date: 20141002
  Serious: Yes (Other)
  Sender: FDA-Public Use
  Company Number: US-PURDUE-USA-2014-0109981

PATIENT
  Age: 20 Year
  Sex: Male

DRUGS (2)
  1. OXYCODONE HYDROCHLORIDE (SIMILAR TO NDA 22-272) [Suspect]
     Indication: DRUG ABUSE
     Route: 048
  2. MARIJUANA [Suspect]
     Indication: SUBSTANCE ABUSE
     Route: 065

REACTIONS (3)
  - Substance abuse [Unknown]
  - Road traffic accident [Unknown]
  - Impaired driving ability [Unknown]
